FAERS Safety Report 20511764 (Version 1)
Quarter: 2022Q1

REPORT INFORMATION
  Report Type: Spontaneous
  Country: US (occurrence: None)
  Receive Date: 20220223
  Receipt Date: 20220223
  Transmission Date: 20220423
  Serious: Yes (Other)
  Sender: FDA-Public Use
  Company Number: None

PATIENT
  Age: 38 Year
  Sex: Female
  Weight: 85.5 kg

DRUGS (1)
  1. JUNEL FE 1/20 [Suspect]
     Active Substance: ETHINYL ESTRADIOL\NORETHINDRONE ACETATE
     Indication: Contraception
     Dosage: OTHER QUANTITY : 1 TABLET(S);?
     Route: 048
     Dates: start: 20220103, end: 20220223

REACTIONS (12)
  - Mood altered [None]
  - Crying [None]
  - Anxiety [None]
  - Panic attack [None]
  - Abdominal pain [None]
  - Abdominal distension [None]
  - Breast pain [None]
  - Dysmenorrhoea [None]
  - Headache [None]
  - Weight increased [None]
  - Anxiety [None]
  - Psychiatric symptom [None]

NARRATIVE: CASE EVENT DATE: 20220103
